FAERS Safety Report 23232183 (Version 1)
Quarter: 2023Q4

REPORT INFORMATION
  Report Type: Report from Study
  Country: IT (occurrence: IT)
  Receive Date: 20231127
  Receipt Date: 20231127
  Transmission Date: 20240109
  Serious: Yes (Disabling)
  Sender: FDA-Public Use
  Company Number: IT-INCYTE CORPORATION-2023IN012028

PATIENT
  Age: 32 Year
  Sex: Female

DRUGS (7)
  1. PONATINIB [Suspect]
     Active Substance: PONATINIB
     Indication: Acute lymphocytic leukaemia
     Dosage: 30 MILLIGRAM, QD
     Route: 048
     Dates: start: 20231011
  2. TRANEXAMIC ACID [Suspect]
     Active Substance: TRANEXAMIC ACID
     Indication: Intermenstrual bleeding
     Dosage: 1 GRAM, TID
     Route: 042
     Dates: start: 20231016, end: 20231019
  3. NORETHINDRONE [Suspect]
     Active Substance: NORETHINDRONE
     Indication: Intermenstrual bleeding
     Dosage: 5 MILLIGRAM, QD
     Route: 048
     Dates: start: 20231017, end: 20231024
  4. DEXAMETHASONE [Concomitant]
     Active Substance: DEXAMETHASONE
     Indication: Acute lymphocytic leukaemia
     Dosage: 10 MILLIGRAM, BID
     Route: 042
     Dates: start: 20231011
  5. IDARUBICIN [Concomitant]
     Active Substance: IDARUBICIN
     Indication: Acute lymphocytic leukaemia
     Dosage: 24 MILLIGRAM, QD
     Route: 042
     Dates: start: 20231011
  6. VINCRISTINE [Concomitant]
     Active Substance: VINCRISTINE
     Indication: Acute lymphocytic leukaemia
     Dosage: 2 MILLIGRAM, QD
     Route: 042
     Dates: start: 20231011
  7. GRANULOCYTE COLONY-STIMULATING FACTOR NOS [Concomitant]
     Active Substance: GRANULOCYTE COLONY-STIMULATING FACTOR NOS
     Indication: Acute lymphocytic leukaemia
     Dosage: 30 MILLIGRAM, QD
     Route: 058
     Dates: start: 20231016

REACTIONS (1)
  - Ovarian vein thrombosis [Not Recovered/Not Resolved]

NARRATIVE: CASE EVENT DATE: 20231024
